FAERS Safety Report 7176765-5 (Version None)
Quarter: 2010Q4

REPORT INFORMATION
  Report Type: 
  Country: None (occurrence: None)
  Receive Date: 20101220
  Receipt Date: 20101210
  Transmission Date: 20110411
  Serious: Yes (Other)
  Sender: FDA-Public Use
  Company Number: PHHY2010US81641

PATIENT
  Sex: Female

DRUGS (4)
  1. FANAPT [Suspect]
     Indication: DELUSION
     Dosage: 8 MG, BID
     Route: 048
     Dates: start: 20100630
  2. FANAPT [Suspect]
     Dosage: 2 MG, BID
     Route: 048
  3. CLONAZEPAM [Concomitant]
     Indication: ANXIETY
     Dosage: 0.5 MG, BID
     Route: 048
  4. LEVOTHYROXINE [Concomitant]
     Dosage: 25 MG, UNK

REACTIONS (2)
  - AMNESIA [None]
  - APHASIA [None]
